FAERS Safety Report 24321497 (Version 1)
Quarter: 2024Q3

REPORT INFORMATION
  Report Type: Spontaneous
  Country: US (occurrence: US)
  Receive Date: 20240916
  Receipt Date: 20240916
  Transmission Date: 20241017
  Serious: No
  Sender: SANDOZ
  Company Number: US-SANDOZ-SDZ2024US079948

PATIENT
  Sex: Female

DRUGS (1)
  1. ESTRADIOL [Suspect]
     Active Substance: ESTRADIOL
     Indication: Product used for unknown indication
     Dosage: 0.0375MG/1D 4TTSM
     Route: 065

REACTIONS (5)
  - Night sweats [Unknown]
  - Hormone level abnormal [Unknown]
  - Breast pain [Unknown]
  - Headache [Unknown]
  - Product adhesion issue [Unknown]
